FAERS Safety Report 25404413 (Version 1)
Quarter: 2025Q2

REPORT INFORMATION
  Report Type: Spontaneous
  Country: US (occurrence: US)
  Receive Date: 20250606
  Receipt Date: 20250606
  Transmission Date: 20250716
  Serious: No
  Sender: PIERRE FABRE MEDICAMENT
  Company Number: US-PFM-2024-03119

PATIENT

DRUGS (2)
  1. PROPRANOLOL [Suspect]
     Active Substance: PROPRANOLOL HYDROCHLORIDE
     Indication: Arrhythmia
     Route: 065
  2. PROPRANOLOL [Suspect]
     Active Substance: PROPRANOLOL HYDROCHLORIDE
     Indication: Off label use

REACTIONS (3)
  - Contraindicated product administered [Unknown]
  - Drug ineffective for unapproved indication [Unknown]
  - Off label use [Unknown]
